FAERS Safety Report 9503968 (Version 1)
Quarter: 2013Q3

REPORT INFORMATION
  Report Type: Spontaneous
  Country: FI (occurrence: FI)
  Receive Date: 20130906
  Receipt Date: 20130906
  Transmission Date: 20140515
  Serious: Yes (Death)
  Sender: FDA-Public Use
  Company Number: FI-GLAXOSMITHKLINE-B0919826A

PATIENT
  Sex: Male

DRUGS (2)
  1. ARZERRA [Suspect]
     Indication: CHRONIC LYMPHOCYTIC LEUKAEMIA
     Dates: start: 2013, end: 2013
  2. BENDAMUSTINE [Suspect]
     Indication: CHRONIC LYMPHOCYTIC LEUKAEMIA
     Route: 065
     Dates: start: 2013, end: 2013

REACTIONS (3)
  - Renal impairment [Unknown]
  - Hepatitis [Fatal]
  - Hepatic enzyme increased [Unknown]
